FAERS Safety Report 17277892 (Version 2)
Quarter: 2020Q1

REPORT INFORMATION
  Report Type: Spontaneous
  Country: US (occurrence: US)
  Receive Date: 20200116
  Receipt Date: 20200318
  Transmission Date: 20200409
  Serious: No
  Sender: FDA-Public Use
  Company Number: US-GUERBET-US-20190184

PATIENT
  Age: 37 Year
  Sex: Female
  Weight: 54.4 kg

DRUGS (4)
  1. ESTRADIOL. [Concomitant]
     Active Substance: ESTRADIOL
     Indication: INFERTILITY
     Route: 048
  2. PROGESTERONE. [Concomitant]
     Active Substance: PROGESTERONE
     Indication: INFERTILITY
     Route: 067
  3. LIPIODOL [Suspect]
     Active Substance: ETHIODIZED OIL
     Indication: HYSTEROSALPINGOGRAM
     Route: 065
     Dates: start: 20181204, end: 20181204
  4. LEVOTHYROXINE. [Concomitant]
     Active Substance: LEVOTHYROXINE
     Indication: INFERTILITY
     Route: 048

REACTIONS (2)
  - Maternal exposure before pregnancy [Recovered/Resolved]
  - Therapeutic response unexpected [Recovered/Resolved]

NARRATIVE: CASE EVENT DATE: 20181204
